FAERS Safety Report 23064000 (Version 1)
Quarter: 2023Q4

REPORT INFORMATION
  Report Type: Spontaneous
  Country: CA (occurrence: None)
  Receive Date: 20231013
  Receipt Date: 20231013
  Transmission Date: 20240110
  Serious: Yes (Hospitalization)
  Sender: FDA-Public Use
  Company Number: CA-ROCHE-3435515

PATIENT
  Age: 74 Year
  Sex: Male

DRUGS (10)
  1. RITUXIMAB [Suspect]
     Active Substance: RITUXIMAB
     Indication: Granulomatosis with polyangiitis
     Route: 041
  2. APIXABAN [Concomitant]
     Active Substance: APIXABAN
  3. BENADRYL [Concomitant]
     Active Substance: DIPHENHYDRAMINE HYDROCHLORIDE
  4. CALCIUM [Concomitant]
     Active Substance: CALCIUM
  5. METHOTREXATE [Concomitant]
     Active Substance: METHOTREXATE
  6. MYRBETRIQ [Concomitant]
     Active Substance: MIRABEGRON
  7. PREDNISONE [Concomitant]
     Active Substance: PREDNISONE
  8. SOLU-MEDROL [Concomitant]
     Active Substance: METHYLPREDNISOLONE SODIUM SUCCINATE
  9. SULFADIAZINE\TETROXOPRIM [Concomitant]
     Active Substance: SULFADIAZINE\TETROXOPRIM
  10. TYLENOL [Concomitant]
     Active Substance: ACETAMINOPHEN

REACTIONS (12)
  - Benign prostatic hyperplasia [Unknown]
  - Cellulitis [Unknown]
  - Chest discomfort [Unknown]
  - Cutaneous lupus erythematosus [Unknown]
  - Granulomatosis with polyangiitis [Unknown]
  - Lung opacity [Unknown]
  - Myalgia [Unknown]
  - Nasopharyngitis [Unknown]
  - Osteomyelitis [Unknown]
  - Paraesthesia [Unknown]
  - Pulmonary embolism [Unknown]
  - Skin lesion [Unknown]
